FAERS Safety Report 7366703-4 (Version None)
Quarter: 2011Q1

REPORT INFORMATION
  Report Type: 
  Country: None (occurrence: None)
  Receive Date: 20110322
  Receipt Date: 20110311
  Transmission Date: 20110831
  Serious: Yes (Other)
  Sender: FDA-Public Use
  Company Number: US-PFIZER INC-2004063404

PATIENT
  Sex: Male

DRUGS (5)
  1. NEURONTIN [Suspect]
     Indication: INSOMNIA
  2. DARVOCET-N 100 [Concomitant]
     Dosage: UNK
     Route: 048
  3. NEURONTIN [Suspect]
     Indication: NEURALGIA
     Dosage: 100 MG AT BED TIME FOR 3 DAYS
     Route: 048
     Dates: start: 20020501
  4. NEURONTIN [Suspect]
     Indication: RESTLESS LEGS SYNDROME
  5. CELEBREX [Concomitant]
     Dosage: 200 MG EVERY 12 HOURS
     Route: 048

REACTIONS (7)
  - SUICIDAL IDEATION [None]
  - ANXIETY [None]
  - THINKING ABNORMAL [None]
  - EMOTIONAL DISTRESS [None]
  - DRUG INEFFECTIVE FOR UNAPPROVED INDICATION [None]
  - INJURY [None]
  - DEPRESSION [None]
